FAERS Safety Report 15357286 (Version 1)
Quarter: 2018Q3

REPORT INFORMATION
  Report Type: Spontaneous
  Country: JP (occurrence: JP)
  Receive Date: 20180906
  Receipt Date: 20180906
  Transmission Date: 20181010
  Serious: Yes (Disabling)
  Sender: FDA-Public Use
  Company Number: JP-OTSUKA-2018_016577

PATIENT
  Age: 46 Year
  Sex: Female

DRUGS (7)
  1. LOXOPROFEN [Concomitant]
     Active Substance: LOXOPROFEN
     Indication: PRODUCT USED FOR UNKNOWN INDICATION
     Dosage: UNK
     Route: 048
  2. TAURINE [Concomitant]
     Active Substance: TAURINE
     Indication: PRODUCT USED FOR UNKNOWN INDICATION
     Dosage: 3 SACHETS, QD
     Route: 050
  3. SAMSCA [Suspect]
     Active Substance: TOLVAPTAN
     Indication: CARDIAC FAILURE
     Dosage: 7.5 MG, QD
     Route: 050
     Dates: start: 20161216, end: 20161216
  4. SAMSCA [Suspect]
     Active Substance: TOLVAPTAN
     Dosage: 3.725 MG, QD
     Route: 050
     Dates: start: 20161214, end: 20161215
  5. AMIODARONE [Concomitant]
     Active Substance: AMIODARONE
     Indication: PRODUCT USED FOR UNKNOWN INDICATION
     Dosage: 200 MG, QD
     Route: 050
     Dates: start: 20161115, end: 20180825
  6. BISONO [Concomitant]
     Active Substance: BISOPROLOL
     Indication: PRODUCT USED FOR UNKNOWN INDICATION
     Dosage: 2 MG, QD
     Route: 062
     Dates: start: 20161111, end: 20161221
  7. UBIDECARENONE [Concomitant]
     Active Substance: UBIDECARENONE
     Indication: PRODUCT USED FOR UNKNOWN INDICATION
     Dosage: 60 MG, QD
     Route: 050

REACTIONS (3)
  - Hypernatraemia [Recovered/Resolved with Sequelae]
  - Quadriplegia [Recovered/Resolved with Sequelae]
  - Incorrect route of drug administration [Unknown]

NARRATIVE: CASE EVENT DATE: 20161218
